FAERS Safety Report 20832226 (Version 1)
Quarter: 2022Q2

REPORT INFORMATION
  Report Type: 
  Country: None (occurrence: None)
  Receive Date: 20220516
  Receipt Date: 20220516
  Transmission Date: 20220721
  Serious: No
  Sender: FDA-Public Use
  Company Number: US-ROCHE-3091633

PATIENT
  Age: 51 Year

DRUGS (5)
  1. OCREVUS [Suspect]
     Active Substance: OCRELIZUMAB
  2. AZITHROMYCIN [Concomitant]
     Active Substance: AZITHROMYCIN
  3. LOSARTAN [Concomitant]
     Active Substance: LOSARTAN
  4. VANCOMYCIN [Concomitant]
     Active Substance: VANCOMYCIN
  5. PREDNISONE [Concomitant]
     Active Substance: PREDNISONE

REACTIONS (13)
  - Pneumonia [None]
  - Hyponatraemia [None]
  - Microcytic anaemia [None]
  - Deafness [None]
  - Pulmonary oedema [None]
  - Urinary tract infection [None]
  - Emphysema [None]
  - Nephrolithiasis [None]
  - Ovarian cyst [None]
  - Hiatus hernia [None]
  - COVID-19 [None]
  - Hepatomegaly [None]
  - Hepatic steatosis [None]

NARRATIVE: CASE EVENT DATE: 20220101
